FAERS Safety Report 5926347-5 (Version None)
Quarter: 2008Q4

REPORT INFORMATION
  Report Type: 
  Country: None (occurrence: None)
  Receive Date: 20081017
  Receipt Date: 20081001
  Transmission Date: 20090506
  Serious: Yes (Life-Threatening, Hospitalization)
  Sender: FDA-Public Use
  Company Number: 1000001363

PATIENT
  Age: 39 Year
  Sex: Male

DRUGS (6)
  1. ESCITALOPRAM [Suspect]
     Dosage: 10 TABLETS (ONCE), ORAL; ORAL
     Route: 048
     Dates: start: 20080812, end: 20080812
  2. ANAFRANIL [Suspect]
     Dosage: 1 BOX (ONCE), ORAL
     Route: 048
     Dates: start: 20080812, end: 20080812
  3. XANAX [Suspect]
     Dosage: (2 DOSAGE FORMS, ONCE), ORAL; ORAL
     Route: 048
     Dates: start: 20080812, end: 20080812
  4. TERCIAN [Suspect]
     Dosage: (10 DOSAGE FORMS, ONCE), ORAL; ORAL
     Route: 048
     Dates: start: 20080812, end: 20080812
  5. PREVISCAN [Concomitant]
  6. OMEPRAZOLE [Concomitant]

REACTIONS (7)
  - HEADACHE [None]
  - INTERNATIONAL NORMALISED RATIO INCREASED [None]
  - MULTIPLE DRUG OVERDOSE INTENTIONAL [None]
  - PSYCHOMOTOR RETARDATION [None]
  - SOMNOLENCE [None]
  - SUICIDE ATTEMPT [None]
  - TACHYCARDIA [None]
